FAERS Safety Report 5544328-0 (Version None)
Quarter: 2007Q4

REPORT INFORMATION
  Report Type: 
  Country: None (occurrence: None)
  Receive Date: 20071210
  Receipt Date: 20061130
  Transmission Date: 20080405
  Serious: No
  Sender: FDA-Public Use
  Company Number: US-AMGEN-KDL201930

PATIENT
  Sex: Female

DRUGS (2)
  1. ENBREL [Suspect]
     Indication: RHEUMATOID ARTHRITIS
     Route: 058
     Dates: start: 20060417
  2. PLAQUENIL [Concomitant]
     Route: 048
     Dates: start: 20030101

REACTIONS (9)
  - ARTHRALGIA [None]
  - COUGH [None]
  - HEADACHE [None]
  - INCREASED UPPER AIRWAY SECRETION [None]
  - MASS [None]
  - RESPIRATORY TRACT CONGESTION [None]
  - TENDERNESS [None]
  - TOOTHACHE [None]
  - WEIGHT DECREASED [None]
